FAERS Safety Report 22876754 (Version 3)
Quarter: 2023Q4

REPORT INFORMATION
  Report Type: Spontaneous
  Country: US (occurrence: US)
  Receive Date: 20230829
  Receipt Date: 20231115
  Transmission Date: 20240110
  Serious: Yes (Other)
  Sender: FDA-Public Use
  Company Number: US-PFIZER INC-PV202300143943

PATIENT
  Age: 65 Year
  Sex: Male
  Weight: 83.9 kg

DRUGS (1)
  1. INLYTA [Suspect]
     Active Substance: AXITINIB
     Indication: Renal cancer
     Dosage: UNK

REACTIONS (2)
  - Dyspnoea [Unknown]
  - Neoplasm progression [Unknown]
